FAERS Safety Report 25573825 (Version 1)
Quarter: 2025Q3

REPORT INFORMATION
  Report Type: Report from Study
  Country: US (occurrence: US)
  Receive Date: 20250717
  Receipt Date: 20250717
  Transmission Date: 20251020
  Serious: Yes (Death)
  Sender: NOVARTIS
  Company Number: US-002147023-NVSC2025US113760

PATIENT
  Sex: Female

DRUGS (1)
  1. KYMRIAH [Suspect]
     Active Substance: TISAGENLECLEUCEL
     Indication: Diffuse large B-cell lymphoma
     Route: 065

REACTIONS (1)
  - Death [Fatal]
